FAERS Safety Report 9056107 (Version 2)
Quarter: 2013Q2

REPORT INFORMATION
  Report Type: Report from Study
  Country: JP (occurrence: JP)
  Receive Date: 20130205
  Receipt Date: 20130430
  Transmission Date: 20140414
  Serious: Yes (Hospitalization)
  Sender: FDA-Public Use
  Company Number: JP-SANOFI-AVENTIS-2013SA007299

PATIENT
  Age: 81 Year
  Sex: Male
  Weight: 49.9 kg

DRUGS (6)
  1. LANTUS SOLOSTAR [Suspect]
     Indication: TYPE 2 DIABETES MELLITUS
     Dosage: DOSE:8 UNIT(S)
     Route: 058
     Dates: start: 20120710, end: 20120722
  2. LANTUS SOLOSTAR [Suspect]
     Indication: TYPE 2 DIABETES MELLITUS
     Dosage: DOSE:6 UNIT(S)
     Route: 058
     Dates: start: 20120723, end: 20120805
  3. LANTUS SOLOSTAR [Suspect]
     Indication: TYPE 2 DIABETES MELLITUS
     Dosage: DOSE:2 UNIT(S)
     Route: 058
     Dates: start: 20120806, end: 20120905
  4. SOLOSTAR [Suspect]
     Indication: DEVICE THERAPY
     Dates: start: 20120710, end: 20120905
  5. JANUVIA [Concomitant]
     Indication: TYPE 2 DIABETES MELLITUS
     Route: 048
     Dates: start: 20120611, end: 20120905
  6. FUROSEMIDE [Concomitant]
     Route: 048
     Dates: end: 20120905

REACTIONS (1)
  - Bronchopneumonia [Recovered/Resolved]
